FAERS Safety Report 19030649 (Version 4)
Quarter: 2022Q2

REPORT INFORMATION
  Report Type: Report from Study
  Country: US (occurrence: US)
  Receive Date: 20210319
  Receipt Date: 20220408
  Transmission Date: 20220720
  Serious: No
  Sender: FDA-Public Use
  Company Number: US-ACADIA PHARMACEUTICALS INC.-ACA-2021-PIM-000703

PATIENT
  Age: 78 Year
  Sex: Male

DRUGS (18)
  1. NUPLAZID [Suspect]
     Active Substance: PIMAVANSERIN TARTRATE
     Indication: Parkinson^s disease psychosis
     Dosage: 34 MILLIGRAM, QD
     Route: 048
     Dates: start: 202011
  2. NUPLAZID [Suspect]
     Active Substance: PIMAVANSERIN TARTRATE
     Indication: Hallucination
  3. NUPLAZID [Suspect]
     Active Substance: PIMAVANSERIN TARTRATE
     Indication: Delusion
  4. HUMALOG [Concomitant]
     Active Substance: INSULIN LISPRO
  5. LANTUS [Concomitant]
     Active Substance: INSULIN GLARGINE
  6. LISINOPRIL [Concomitant]
     Active Substance: LISINOPRIL
  7. GLIPIZIDE [Concomitant]
     Active Substance: GLIPIZIDE
  8. MIRAPEX [Concomitant]
     Active Substance: PRAMIPEXOLE DIHYDROCHLORIDE
     Dosage: 0.125 MG
     Dates: start: 20201021
  9. LASIX [Concomitant]
     Active Substance: FUROSEMIDE
  10. ZOLOFT [Concomitant]
     Active Substance: SERTRALINE HYDROCHLORIDE
  11. FINASTERIDE [Concomitant]
     Active Substance: FINASTERIDE
  12. VITAMIN B COMPLEX [Concomitant]
     Active Substance: CYANOCOBALAMIN\DEXPANTHENOL\NIACINAMIDE\PYRIDOXINE HYDROCHLORIDE\RIBOFLAVIN 5^-PHOSPHATE SODIUM\THIA
  13. COMTAN [Concomitant]
     Active Substance: ENTACAPONE
     Dosage: 200 MILLIGRAM
     Dates: start: 20201021
  14. MORNIFLUMATE [Concomitant]
     Active Substance: MORNIFLUMATE
  15. SINEMET [Concomitant]
     Active Substance: CARBIDOPA\LEVODOPA
     Dosage: 25/100
     Dates: start: 20201021
  16. TYLENOL [Concomitant]
     Active Substance: ACETAMINOPHEN
  17. CARBIDOPA [Concomitant]
     Active Substance: CARBIDOPA
     Dosage: 25 MILLIGRAM
  18. LEVODOPA [Concomitant]
     Active Substance: LEVODOPA
     Dosage: 100 MILLIGRAM
     Dates: start: 20201021

REACTIONS (5)
  - Hypersomnia [Unknown]
  - Hallucination [Unknown]
  - Confusional state [Unknown]
  - Somnolence [Recovered/Resolved]
  - Confusional state [Recovered/Resolved]

NARRATIVE: CASE EVENT DATE: 20201101
